FAERS Safety Report 23920150 (Version 1)
Quarter: 2024Q2

REPORT INFORMATION
  Report Type: Spontaneous
  Country: US (occurrence: None)
  Receive Date: 20240530
  Receipt Date: 20240530
  Transmission Date: 20240716
  Serious: No
  Sender: FDA-Public Use
  Company Number: None

PATIENT
  Age: 16 Year

DRUGS (4)
  1. CLOZAPINE [Suspect]
     Active Substance: CLOZAPINE
  2. CLOZAPINE [Suspect]
     Active Substance: CLOZAPINE
  3. FLUVOXAMINE MALEATE [Suspect]
     Active Substance: FLUVOXAMINE MALEATE
  4. FLUVOXAMINE MALEATE [Suspect]
     Active Substance: FLUVOXAMINE MALEATE

REACTIONS (3)
  - Contraindicated product administered [None]
  - Drug interaction [None]
  - Antipsychotic drug level increased [None]
